FAERS Safety Report 9331161 (Version 1)
Quarter: 2013Q2

REPORT INFORMATION
  Report Type: Spontaneous
  Country: IN (occurrence: IN)
  Receive Date: 20130605
  Receipt Date: 20130605
  Transmission Date: 20140414
  Serious: Yes (Other)
  Sender: FDA-Public Use
  Company Number: PHHY2013IN056093

PATIENT
  Age: 69 Year
  Sex: Male

DRUGS (4)
  1. ATENOLOL [Suspect]
     Indication: HYPERTENSION
     Dosage: 25 MG, QD
  2. DICLOFAM SP [Interacting]
     Dosage: 60 MG, TID
  3. AMPICILLIN\CLOXACILLIN [Concomitant]
     Dosage: 500 MG, TID
  4. RANITIDINE [Concomitant]
     Dosage: 150 MG, TWICE DAILY

REACTIONS (4)
  - Renal failure acute [Recovered/Resolved]
  - Local swelling [Recovered/Resolved]
  - Micturition frequency decreased [Recovered/Resolved]
  - Drug interaction [Unknown]
